FAERS Safety Report 24818693 (Version 3)
Quarter: 2025Q1

REPORT INFORMATION
  Report Type: Report from Study
  Country: FR (occurrence: FR)
  Receive Date: 20250108
  Receipt Date: 20250212
  Transmission Date: 20250409
  Serious: Yes (Other)
  Sender: NOVARTIS
  Company Number: FR-002147023-NVSC2024FR216051

PATIENT
  Age: 45 Year
  Sex: Female

DRUGS (2)
  1. VIJOICE [Suspect]
     Active Substance: ALPELISIB
     Indication: PIK3CA related overgrowth spectrum
     Dosage: 250 MG, QD
     Route: 048
     Dates: start: 20240920, end: 20241011
  2. VIJOICE [Suspect]
     Active Substance: ALPELISIB
     Dosage: 125 MG, QD
     Route: 048
     Dates: start: 20241028

REACTIONS (6)
  - Diabetes mellitus [Unknown]
  - Hyperglycaemia [Recovering/Resolving]
  - Arthralgia [Unknown]
  - Electric shock sensation [Unknown]
  - Rash [Recovered/Resolved]
  - Rash [Recovered/Resolved]

NARRATIVE: CASE EVENT DATE: 20240901
